FAERS Safety Report 5344300-X (Version None)
Quarter: 2007Q2

REPORT INFORMATION
  Report Type: 
  Country: None (occurrence: None)
  Receive Date: 20070604
  Receipt Date: 20070523
  Transmission Date: 20071010
  Serious: Yes (Hospitalization, Other)
  Sender: FDA-Public Use
  Company Number: US-ELI_LILLY_AND_COMPANY-US200705005922

PATIENT
  Age: 53 Year
  Sex: Female

DRUGS (2)
  1. CYMBALTA [Suspect]
     Indication: FIBROMYALGIA
     Dosage: UNK, UNK
     Route: 048
     Dates: start: 20051101
  2. CYMBALTA [Suspect]
     Dosage: UNK, UNK
     Route: 048

REACTIONS (7)
  - ANGLE CLOSURE GLAUCOMA [None]
  - CONTUSION [None]
  - FEMUR FRACTURE [None]
  - HEADACHE [None]
  - MUSCLE ATROPHY [None]
  - MYASTHENIA GRAVIS [None]
  - NEUROPATHY PERIPHERAL [None]
